FAERS Safety Report 10998724 (Version 1)
Quarter: 2015Q2

REPORT INFORMATION
  Report Type: Spontaneous
  Country: CA (occurrence: CA)
  Receive Date: 20150408
  Receipt Date: 20150408
  Transmission Date: 20150821
  Serious: Yes (Other)
  Sender: FDA-Public Use
  Company Number: CA-TEVA-552991ACC

PATIENT
  Age: 28 Year
  Sex: Male

DRUGS (1)
  1. NORTRIPTYLINE [Suspect]
     Active Substance: NORTRIPTYLINE
     Indication: PRODUCT USED FOR UNKNOWN INDICATION
     Dosage: UNKNOWN FORM STRENGTH
     Route: 048

REACTIONS (5)
  - Anger [Unknown]
  - Seizure [Unknown]
  - Somnolence [Unknown]
  - Migraine [Unknown]
  - Rash [Unknown]
